FAERS Safety Report 22040603 (Version 3)
Quarter: 2024Q2

REPORT INFORMATION
  Report Type: Spontaneous
  Country: DE (occurrence: DE)
  Receive Date: 20230227
  Receipt Date: 20240410
  Transmission Date: 20240716
  Serious: Yes (Hospitalization, Other)
  Sender: FDA-Public Use
  Company Number: DE-CELLTRION HEALTHCARE HUNGARY KFT-2023DE002572

PATIENT
  Age: 34 Year
  Sex: Male

DRUGS (15)
  1. MYCOPHENOLATE MOFETIL [Suspect]
     Active Substance: MYCOPHENOLATE MOFETIL
     Indication: Immunosuppressant drug therapy
     Dosage: UNK
     Route: 065
  2. TACROLIMUS [Suspect]
     Active Substance: TACROLIMUS
     Indication: Immunosuppressant drug therapy
     Dosage: UNK
     Route: 065
  3. REMDESIVIR [Suspect]
     Active Substance: REMDESIVIR
     Indication: Immunosuppressant drug therapy
     Route: 065
  4. RITUXIMAB [Suspect]
     Active Substance: RITUXIMAB
     Indication: ABO incompatibility
     Dosage: UNK
     Route: 065
  5. RITUXIMAB [Suspect]
     Active Substance: RITUXIMAB
     Indication: Prophylaxis against transplant rejection
  6. MOLNUPIRAVIR [Suspect]
     Active Substance: MOLNUPIRAVIR
     Indication: Immunosuppressant drug therapy
     Dosage: UNK
     Route: 065
  7. SOTROVIMAB [Suspect]
     Active Substance: SOTROVIMAB
     Indication: Immunosuppressant drug therapy
     Dosage: UNK
     Route: 065
  8. PREDNISONE [Suspect]
     Active Substance: PREDNISONE
     Indication: Immunosuppressant drug therapy
     Dosage: CUMULATIVE DOSE OF 1 G OVER THREE DAYS
     Route: 042
  9. PREDNISONE [Suspect]
     Active Substance: PREDNISONE
     Dosage: 1 G CUMULATIVE
     Route: 042
  10. PREDNISONE [Suspect]
     Active Substance: PREDNISONE
     Dosage: CUMULATIVE DOSE OF 60 G OVER THREE DAYS
     Route: 042
  11. THYMOGLOBULIN [Concomitant]
     Active Substance: LAPINE T-LYMPHOCYTE IMMUNE GLOBULIN
     Dosage: 300 MG CUMULATIVE
     Route: 042
  12. Immunoglobulin [Concomitant]
     Dosage: RENEWED IVIG
     Route: 042
  13. Immunoglobulin [Concomitant]
     Dosage: CUMULATIVE DOSE OF 60 G OVER THREE DAYS
     Route: 042
  14. PREDNISOLONE [Concomitant]
     Active Substance: PREDNISOLONE
     Dosage: 1 GRAM (CUMULATIVE DOSE OF 1 G OVER THREE DAYS)
     Route: 042
  15. PREDNISOLONE [Concomitant]
     Active Substance: PREDNISOLONE
     Dosage: 60 GRAM (~CUMULATIVE DOSE OF 60 G OVER THREE DAYS)
     Route: 042

REACTIONS (5)
  - Renal transplant failure [Unknown]
  - COVID-19 [Recovered/Resolved]
  - Immunosuppression [Unknown]
  - COVID-19 pneumonia [Recovered/Resolved]
  - Off label use [Unknown]
